FAERS Safety Report 9372796 (Version 2)
Quarter: 2013Q3

REPORT INFORMATION
  Report Type: Report from Study
  Country: US (occurrence: US)
  Receive Date: 20130627
  Receipt Date: 20130712
  Transmission Date: 20140515
  Serious: Yes (Hospitalization)
  Sender: FDA-Public Use
  Company Number: US-ACTELION-A-NJ2013-84981

PATIENT
  Age: 48 Year
  Sex: Female

DRUGS (4)
  1. VELETRI [Suspect]
     Indication: PULMONARY ARTERIAL HYPERTENSION
     Dosage: 28.5 NG/KG, PER MIN
     Route: 042
     Dates: start: 20110722
  2. COUMADIN [Concomitant]
  3. ADCIRCA [Concomitant]
  4. LETAIRIS [Concomitant]

REACTIONS (2)
  - Catheterisation cardiac [Recovered/Resolved]
  - Post procedural haemorrhage [Recovered/Resolved]
